FAERS Safety Report 10727520 (Version 3)
Quarter: 2015Q1

REPORT INFORMATION
  Report Type: Spontaneous
  Country: US (occurrence: US)
  Receive Date: 20150121
  Receipt Date: 20150224
  Transmission Date: 20150721
  Serious: Yes (Other)
  Sender: FDA-Public Use
  Company Number: US-TEVA-534971USA

PATIENT
  Sex: Female

DRUGS (1)
  1. WARFARIN [Suspect]
     Active Substance: WARFARIN
     Indication: DEEP VEIN THROMBOSIS
     Dosage: DOSE AND FREQUENCY NOT PROVIDED

REACTIONS (4)
  - Mastoiditis [Unknown]
  - Cerebral haemorrhage [Unknown]
  - Haemorrhage intracranial [Unknown]
  - Infection [Unknown]
